FAERS Safety Report 8773212 (Version 1)
Quarter: 2012Q4

REPORT INFORMATION
  Report Type: 
  Country: IT (occurrence: IT)
  Receive Date: 20120907
  Receipt Date: 20120907
  Transmission Date: 20130627
  Serious: Yes (Other)
  Sender: FDA-Public Use
  Company Number: IT-BAXTER-2012BAX015840

PATIENT
  Sex: Male

DRUGS (1)
  1. SUPRANE [Suspect]
     Indication: ACCIDENTAL EXPOSURE TO PRODUCT
     Route: 031
     Dates: start: 20120818, end: 20120818

REACTIONS (4)
  - Blindness transient [Unknown]
  - Accidental exposure to product [Unknown]
  - Eye irritation [Unknown]
  - Corneal abrasion [Unknown]
